FAERS Safety Report 17498587 (Version 2)
Quarter: 2020Q2

REPORT INFORMATION
  Report Type: Report from Study
  Country: GB (occurrence: GB)
  Receive Date: 20200304
  Receipt Date: 20200413
  Transmission Date: 20200713
  Serious: Yes (Other)
  Sender: FDA-Public Use
  Company Number: NVSC2020GB061851

PATIENT
  Age: 53 Year
  Sex: Female

DRUGS (1)
  1. COSENTYX [Suspect]
     Active Substance: SECUKINUMAB
     Indication: ANKYLOSING SPONDYLITIS
     Dosage: 150 MG, QW ON WEEKS, 0,1,2,3, 4 AND FOLLOWED BY QMO
     Route: 058
     Dates: start: 20200225

REACTIONS (3)
  - Rash [Unknown]
  - Anaphylactic reaction [Unknown]
  - Flushing [Unknown]
